FAERS Safety Report 15203715 (Version 2)
Quarter: 2022Q1

REPORT INFORMATION
  Report Type: Report from Study
  Country: US (occurrence: US)
  Receive Date: 20180726
  Receipt Date: 20220210
  Transmission Date: 20220423
  Serious: No
  Sender: FDA-Public Use
  Company Number: US-TAKEDA-2018TUS023132

PATIENT
  Age: 79 Year
  Sex: Male

DRUGS (1)
  1. BRIGATINIB [Suspect]
     Active Substance: BRIGATINIB
     Indication: Lung carcinoma cell type unspecified stage 0
     Dosage: 90 MILLIGRAM
     Route: 048
     Dates: start: 20180723

REACTIONS (3)
  - Fatigue [Unknown]
  - Diarrhoea [Unknown]
  - Cough [Unknown]

NARRATIVE: CASE EVENT DATE: 20180723
